FAERS Safety Report 25365754 (Version 1)
Quarter: 2025Q2

REPORT INFORMATION
  Report Type: Spontaneous
  Country: US (occurrence: US)
  Receive Date: 20250528
  Receipt Date: 20250528
  Transmission Date: 20250717
  Serious: No
  Sender: AMGEN
  Company Number: US-AMGEN-USASP2025099906

PATIENT
  Age: 68 Year
  Sex: Male

DRUGS (9)
  1. REPATHA [Suspect]
     Active Substance: EVOLOCUMAB
     Indication: Product used for unknown indication
     Route: 065
  2. RECORLEV [Suspect]
     Active Substance: LEVOKETOCONAZOLE
     Indication: Cushing^s syndrome
     Route: 048
     Dates: start: 20250128, end: 202501
  3. RECORLEV [Suspect]
     Active Substance: LEVOKETOCONAZOLE
     Route: 048
     Dates: start: 2025
  4. RECORLEV [Suspect]
     Active Substance: LEVOKETOCONAZOLE
     Route: 048
  5. RECORLEV [Suspect]
     Active Substance: LEVOKETOCONAZOLE
     Route: 048
  6. RECORLEV [Suspect]
     Active Substance: LEVOKETOCONAZOLE
     Route: 048
  7. IBUPROFEN [Suspect]
     Active Substance: IBUPROFEN
     Indication: Product used for unknown indication
     Route: 065
     Dates: end: 202501
  8. XANAX [Concomitant]
     Active Substance: ALPRAZOLAM
  9. CLONIDINE [Concomitant]
     Active Substance: CLONIDINE

REACTIONS (16)
  - Gout [Unknown]
  - Feeling abnormal [Unknown]
  - Pollakiuria [Unknown]
  - Blood testosterone decreased [Unknown]
  - Blood magnesium decreased [Unknown]
  - Bronchitis [Unknown]
  - Anxiety [Unknown]
  - Gastrointestinal bacterial infection [Unknown]
  - Lactose intolerance [Unknown]
  - Pancreatic enzymes abnormal [Unknown]
  - Hot flush [Unknown]
  - Cold flash [Unknown]
  - Blood potassium decreased [Unknown]
  - Dizziness [Unknown]
  - Blood pressure increased [Unknown]
  - Rash [Unknown]

NARRATIVE: CASE EVENT DATE: 20250101
